FAERS Safety Report 25320579 (Version 2)
Quarter: 2025Q2

REPORT INFORMATION
  Report Type: Spontaneous
  Country: US (occurrence: US)
  Receive Date: 20250515
  Receipt Date: 20250519
  Transmission Date: 20250717
  Serious: Yes (Death)
  Sender: IOVANCE BIOTHERAPEUTICS
  Company Number: US-IOVANCE BIOTHERAPEUTICS, INC-2025IOV000044

PATIENT

DRUGS (3)
  1. AMTAGVI [Suspect]
     Active Substance: LIFILEUCEL
     Route: 042
     Dates: start: 20250128, end: 20250128
  2. CYCLOPHOSPHAMIDE [Suspect]
     Active Substance: CYCLOPHOSPHAMIDE
     Indication: Lymphodepletion
     Route: 042
     Dates: start: 20250123, end: 20250124
  3. FLUDARABINE [Suspect]
     Active Substance: FLUDARABINE PHOSPHATE
     Indication: Lymphodepletion
     Route: 042
     Dates: start: 20250123, end: 20250127

REACTIONS (1)
  - Toxic cardiomyopathy [Fatal]

NARRATIVE: CASE EVENT DATE: 20250129
